FAERS Safety Report 9549203 (Version 1)
Quarter: 2013Q2

REPORT INFORMATION
  Report Type: Spontaneous
  Country: US (occurrence: None)
  Receive Date: 20130617
  Receipt Date: 20130617
  Transmission Date: 20140414
  Serious: Yes (Other)
  Sender: FDA-Public Use
  Company Number: M-12-014

PATIENT
  Sex: Male

DRUGS (3)
  1. FLUOXETINE [Suspect]
     Dosage: ORAL (047)
     Route: 048
  2. GENERIC FLUOXETINE [Concomitant]
  3. PROZAC [Concomitant]

REACTIONS (5)
  - Headache [None]
  - Drug ineffective [None]
  - Product substitution issue [None]
  - Product substitution issue [None]
  - Product quality issue [None]
